FAERS Safety Report 11374812 (Version 5)
Quarter: 2016Q2

REPORT INFORMATION
  Report Type: Spontaneous
  Country: US (occurrence: US)
  Receive Date: 20150813
  Receipt Date: 20160405
  Transmission Date: 20160815
  Serious: Yes (Hospitalization, Disabling, Other)
  Sender: FDA-Public Use
  Company Number: US-009507513-1508USA005109

PATIENT
  Sex: Female
  Weight: 49.43 kg

DRUGS (3)
  1. FOSAVANCE [Suspect]
     Active Substance: ALENDRONATE SODIUM\CHOLECALCIFEROL
     Indication: OSTEOPENIA
     Dosage: 70MG ALENDRONATE / 140 UG CHOLECALCIFEROL
     Route: 048
     Dates: start: 200807, end: 201210
  2. FOSAMAX [Suspect]
     Active Substance: ALENDRONATE SODIUM
     Indication: OSTEOPENIA
     Dosage: 70 MG, UNKNOWN
     Route: 048
     Dates: start: 2007, end: 200908
  3. FOSAMAX [Suspect]
     Active Substance: ALENDRONATE SODIUM
     Dosage: 35 MG, QW
     Route: 048
     Dates: start: 20040610, end: 20050315

REACTIONS (15)
  - Low turnover osteopathy [Not Recovered/Not Resolved]
  - Femur fracture [Unknown]
  - Haemorrhagic anaemia [Unknown]
  - Rib fracture [Unknown]
  - Atelectasis [Unknown]
  - Leukocytosis [Unknown]
  - Joint dislocation [Unknown]
  - Anxiety [Not Recovered/Not Resolved]
  - Hypothyroidism [Unknown]
  - Joint dislocation [Unknown]
  - Gastrooesophageal reflux disease [Unknown]
  - Depression [Not Recovered/Not Resolved]
  - Hypertension [Unknown]
  - Stress [Unknown]
  - Vaginal infection [Unknown]

NARRATIVE: CASE EVENT DATE: 2009
